FAERS Safety Report 7456244-8 (Version None)
Quarter: 2011Q2

REPORT INFORMATION
  Report Type: 
  Country: None (occurrence: None)
  Receive Date: 20110503
  Receipt Date: 20110421
  Transmission Date: 20111010
  Serious: No
  Sender: FDA-Public Use
  Company Number: US-B.I. PHARMACEUTICALS,INC./RIDGEFIELD-2011-BP-05460BP

PATIENT
  Sex: Female

DRUGS (9)
  1. KLOR-CON [Concomitant]
     Dosage: 10 MEQ
  2. CALCIUM + D [Concomitant]
     Dosage: 500 MG
  3. FISH OIL [Concomitant]
     Dosage: 1200 MG
  4. PRADAXA [Suspect]
     Indication: ATRIAL FIBRILLATION
     Dosage: 300 MG
     Route: 048
     Dates: start: 20110207
  5. ASPIRIN [Concomitant]
     Dosage: 81 MG
  6. VITAMIN C [Concomitant]
     Dosage: 500 MG
  7. METROGEL [Concomitant]
     Route: 061
  8. SIMVASTATIN [Concomitant]
     Dosage: 20 MG
  9. MULTI-VITAMIN [Concomitant]

REACTIONS (3)
  - ERUCTATION [None]
  - ABDOMINAL DISCOMFORT [None]
  - DYSPEPSIA [None]
